FAERS Safety Report 7096204-2 (Version None)
Quarter: 2010Q4

REPORT INFORMATION
  Report Type: 
  Country: None (occurrence: None)
  Receive Date: 20101111
  Receipt Date: 20101101
  Transmission Date: 20110411
  Serious: Yes (Hospitalization)
  Sender: FDA-Public Use
  Company Number: JP-JNJFOC-20100903341

PATIENT
  Sex: Female
  Weight: 40 kg

DRUGS (6)
  1. REMICADE [Suspect]
     Indication: RHEUMATOID ARTHRITIS
     Route: 042
  2. REMICADE [Suspect]
     Route: 042
  3. PREDNISOLONE [Suspect]
     Indication: RHEUMATOID ARTHRITIS
     Route: 048
  4. OMEPRAL [Concomitant]
     Indication: PROPHYLAXIS
     Route: 048
  5. AMLODIPINE BESYLATE [Concomitant]
     Indication: HYPERTENSION
     Route: 048
  6. ACTONEL [Concomitant]
     Indication: PROPHYLAXIS
     Route: 048

REACTIONS (4)
  - ENTERITIS [None]
  - INFUSION RELATED REACTION [None]
  - THERAPEUTIC RESPONSE DECREASED [None]
  - TUBERCULOUS PLEURISY [None]
